FAERS Safety Report 9166297 (Version 2)
Quarter: 2013Q2

REPORT INFORMATION
  Report Type: Spontaneous
  Country: IE (occurrence: IE)
  Receive Date: 20130315
  Receipt Date: 20130416
  Transmission Date: 20140414
  Serious: Yes (Other)
  Sender: FDA-Public Use
  Company Number: IE-JNJFOC-20130302676

PATIENT
  Sex: Male

DRUGS (3)
  1. XEPLION [Suspect]
     Indication: SCHIZOPHRENIA
     Route: 030
  2. PARACETAMOL [Suspect]
     Route: 065
  3. PARACETAMOL [Suspect]
     Indication: PRODUCT USED FOR UNKNOWN INDICATION
     Route: 065

REACTIONS (2)
  - Liver function test abnormal [Recovering/Resolving]
  - Intentional overdose [Recovering/Resolving]
